FAERS Safety Report 5673841-0 (Version None)
Quarter: 2008Q2

REPORT INFORMATION
  Report Type: 
  Country: None (occurrence: None)
  Receive Date: 20080226
  Receipt Date: 20070417
  Transmission Date: 20081010
  Serious: Yes (Other)
  Sender: FDA-Public Use
  Company Number: 493947

PATIENT
  Age: 15 Year
  Sex: Male

DRUGS (1)
  1. ACCUTANE [Suspect]
     Indication: ACNE
     Dosage: 2 PER DAY ORAL
     Route: 048
     Dates: start: 20060630, end: 20060727

REACTIONS (1)
  - CONVULSION [None]
